FAERS Safety Report 5958748-3 (Version None)
Quarter: 2008Q4

REPORT INFORMATION
  Report Type: 
  Country: None (occurrence: None)
  Receive Date: 20081119
  Receipt Date: 20081114
  Transmission Date: 20090506
  Serious: Yes (Other)
  Sender: FDA-Public Use
  Company Number: DE-B.I. PHARMACEUTICALS,INC./RIDGEFIELD-2008-DE-07005DE

PATIENT
  Age: 54 Year
  Sex: Female

DRUGS (2)
  1. MICARDIS [Suspect]
     Indication: BLOOD PRESSURE
     Dosage: 1ANZ
     Route: 048
     Dates: start: 20080701
  2. BETA BLOCKING AGENTS [Concomitant]

REACTIONS (3)
  - BLOOD PRESSURE DECREASED [None]
  - CIRCULATORY COLLAPSE [None]
  - PETIT MAL EPILEPSY [None]
